FAERS Safety Report 6442253-4 (Version None)
Quarter: 2009Q4

REPORT INFORMATION
  Report Type: 
  Country: None (occurrence: None)
  Receive Date: 20091112
  Receipt Date: 20091030
  Transmission Date: 20100525
  Serious: Yes (Hospitalization)
  Sender: FDA-Public Use
  Company Number: TCI2009A04340

PATIENT
  Age: 67 Year
  Sex: Male

DRUGS (5)
  1. ACTOS [Suspect]
     Indication: DIABETES MELLITUS
     Dosage: 15 MG (15 MG,1 D) PER ORAL
     Route: 048
     Dates: start: 20090402, end: 20090620
  2. OLMESARTAN MEDOXOMIL [Suspect]
     Dosage: 10 MG (10 MG, 1 D) PER ORAL
     Route: 048
  3. COMELIAN KOWA (DILAZEP DIHYDROCHLORIDE) [Suspect]
     Dosage: 2 TAB. (2 TAB., 1 D) PER ORAL
     Route: 047
  4. ALOSENN (ACHILLEA MILLEFOLIUM, SENNA ALEXANDRINA LEAF, SENNA ALEXANDRI [Suspect]
     Dosage: 0.5 GM (0.5 GM,1 D) PER ORAL
     Route: 048
  5. ALLELOCK (OLOPATADINE HYDROCHLORIDE) [Suspect]
     Dosage: 2 TAB. (2 TAB.,1 D) PER ORAL
     Route: 048

REACTIONS (1)
  - DERMATITIS EXFOLIATIVE [None]
